FAERS Safety Report 24183473 (Version 6)
Quarter: 2024Q4

REPORT INFORMATION
  Report Type: Spontaneous
  Country: AT (occurrence: AT)
  Receive Date: 20240807
  Receipt Date: 20241003
  Transmission Date: 20250115
  Serious: Yes (Other)
  Sender: PFIZER
  Company Number: AT-SANDOZ-SDZ2024AT066683

PATIENT
  Age: 66 Year
  Sex: Female

DRUGS (17)
  1. DOXYCYCLINE HYCLATE [Suspect]
     Active Substance: DOXYCYCLINE HYCLATE
     Indication: Infection
     Dosage: UNK
     Dates: start: 20240703
  2. FILGRASTIM [Suspect]
     Active Substance: FILGRASTIM
     Dosage: UNK
  3. METHOTREXATE [Suspect]
     Active Substance: METHOTREXATE
     Dosage: UNK
  4. ALLOPURINOL [Suspect]
     Active Substance: ALLOPURINOL
     Dosage: UNK
     Route: 065
  5. ATORVASTATIN [Suspect]
     Active Substance: ATORVASTATIN
     Dosage: UNK
     Route: 065
  6. CEFUROXIME [Suspect]
     Active Substance: CEFUROXIME
     Dosage: UNK
  7. AMOXICILLIN\CLAVULANATE POTASSIUM [Suspect]
     Active Substance: AMOXICILLIN\CLAVULANATE POTASSIUM
     Dosage: UNK
  8. RIFAXIMIN [Suspect]
     Active Substance: RIFAXIMIN
     Dosage: UNK
  9. CYCLOPHOSPHAMIDE [Suspect]
     Active Substance: CYCLOPHOSPHAMIDE
     Indication: Leukopenia
     Dosage: 50-100MG/D FOR AT LEAST 2-3 MONTHS
  10. GABAPENTIN [Suspect]
     Active Substance: GABAPENTIN
     Dosage: UNK
  11. LEVOFLOXACIN [Suspect]
     Active Substance: LEVOFLOXACIN
     Dosage: UNK
     Route: 065
  12. NITROFURANTOIN [Suspect]
     Active Substance: NITROFURANTOIN
     Dosage: UNK
     Route: 065
  13. PREGABALIN [Suspect]
     Active Substance: PREGABALIN
     Dosage: UNK
  14. SIMVASTATIN [Suspect]
     Active Substance: SIMVASTATIN
     Dosage: UNK
  15. VIROPEL [Concomitant]
     Indication: Herpes simplex
     Dosage: UNK
     Dates: start: 20240702
  16. CYCLOPHOSPHAMIDE [Concomitant]
     Active Substance: CYCLOPHOSPHAMIDE
     Indication: Infection
     Dosage: UNK
  17. CYCLOPHOSPHAMIDE [Concomitant]
     Active Substance: CYCLOPHOSPHAMIDE
     Indication: Neutropenia

REACTIONS (12)
  - Febrile neutropenia [Unknown]
  - Pseudomembranous colitis [Unknown]
  - Myalgia [Unknown]
  - Enthesopathy [Unknown]
  - Tendon pain [Unknown]
  - Headache [Unknown]
  - Confusional state [Unknown]
  - Abdominal pain upper [Unknown]
  - Pruritus [Unknown]
  - Paraesthesia [Unknown]
  - Arthralgia [Unknown]
  - Liver disorder [Unknown]
